FAERS Safety Report 20740308 (Version 4)
Quarter: 2022Q4

REPORT INFORMATION
  Report Type: Report from Study
  Country: CA (occurrence: CA)
  Receive Date: 20220422
  Receipt Date: 20221013
  Transmission Date: 20230113
  Serious: Yes (Hospitalization, Other)
  Sender: FDA-Public Use
  Company Number: CA-JNJFOC-20220356335

PATIENT
  Age: 30 Year
  Sex: Female
  Weight: 49 kg

DRUGS (1)
  1. REMICADE [Suspect]
     Active Substance: INFLIXIMAB
     Indication: Crohn^s disease
     Dosage: THERAPY START DATE WAS ALSO GIVEN AS 09-SEP-2022.
     Route: 041
     Dates: start: 20201221

REACTIONS (3)
  - Skin infection [Recovered/Resolved]
  - Intestinal resection [Unknown]
  - Colostomy [Unknown]

NARRATIVE: CASE EVENT DATE: 20220101
